FAERS Safety Report 10759913 (Version 1)
Quarter: 2015Q1

REPORT INFORMATION
  Report Type: Report from Study
  Country: US (occurrence: US)
  Receive Date: 20150203
  Receipt Date: 20150203
  Transmission Date: 20150721
  Serious: Yes (Other)
  Sender: FDA-Public Use
  Company Number: PHHO2010US11546

PATIENT
  Age: 14 Year
  Sex: Male
  Weight: 95.6 kg

DRUGS (6)
  1. DEPAKOTE [Concomitant]
     Active Substance: DIVALPROEX SODIUM
     Indication: EPILEPSY
     Dosage: TABLET
     Route: 048
     Dates: start: 20111212
  2. ENALAPRIL [Concomitant]
     Active Substance: ENALAPRIL
     Indication: PRODUCT USED FOR UNKNOWN INDICATION
     Route: 065
  3. ZITHROMAX [Interacting]
     Active Substance: AZITHROMYCIN DIHYDRATE
     Indication: PROPHYLAXIS
     Route: 065
  4. AFINITOR [Suspect]
     Active Substance: EVEROLIMUS
     Indication: ASTROCYTOMA, LOW GRADE
     Dosage: 4.5 MG/M2, QD
     Route: 048
     Dates: start: 20100211
  5. VERSED [Concomitant]
     Active Substance: MIDAZOLAM HYDROCHLORIDE
     Indication: PRODUCT USED FOR UNKNOWN INDICATION
     Route: 065
  6. LAMICTAL [Concomitant]
     Active Substance: LAMOTRIGINE
     Indication: EPILEPSY
     Dosage: UNK
     Route: 048
     Dates: start: 201201

REACTIONS (8)
  - Tremor [Recovered/Resolved]
  - Eye disorder [Recovered/Resolved]
  - Seizure [Recovered/Resolved]
  - Sinus tachycardia [Unknown]
  - Urinary incontinence [Recovered/Resolved]
  - Status epilepticus [Recovered/Resolved]
  - Unresponsive to stimuli [Recovered/Resolved]
  - Drug interaction [Recovered/Resolved]

NARRATIVE: CASE EVENT DATE: 20100711
